FAERS Safety Report 5899070-3 (Version None)
Quarter: 2008Q3

REPORT INFORMATION
  Report Type: 
  Country: None (occurrence: None)
  Receive Date: 20080925
  Receipt Date: 20080917
  Transmission Date: 20090109
  Serious: Yes (Other)
  Sender: FDA-Public Use
  Company Number: US-PFIZER INC-2008078727

PATIENT
  Sex: Female
  Weight: 152 kg

DRUGS (1)
  1. GLUCOTROL XL [Suspect]
     Indication: DIABETES MELLITUS
     Dates: start: 19980101

REACTIONS (13)
  - CONFUSIONAL STATE [None]
  - FATIGUE [None]
  - FLUID RETENTION [None]
  - HEART RATE ABNORMAL [None]
  - LOWER LIMB FRACTURE [None]
  - MENOPAUSE [None]
  - OEDEMA PERIPHERAL [None]
  - PRURITUS [None]
  - RASH [None]
  - RESPIRATORY RATE DECREASED [None]
  - UTERINE CANCER [None]
  - WEIGHT DECREASED [None]
  - WEIGHT INCREASED [None]
